FAERS Safety Report 5280457-7 (Version None)
Quarter: 2007Q1

REPORT INFORMATION
  Report Type: 
  Country: None (occurrence: None)
  Receive Date: 20070329
  Receipt Date: 20070327
  Transmission Date: 20070707
  Serious: Yes (Hospitalization)
  Sender: FDA-Public Use
  Company Number: AU-AVENTIS-200616238EU

PATIENT
  Age: 67 Year
  Sex: Female

DRUGS (24)
  1. ENOXAPARIN SODIUM [Suspect]
     Route: 058
  2. OROXINE [Concomitant]
     Route: 048
     Dates: start: 20061020
  3. DIAFORMIN [Concomitant]
     Route: 048
     Dates: start: 20061020
  4. ZYLOPRIM [Concomitant]
     Indication: GOUT
     Route: 048
     Dates: start: 20061020
  5. SIMVASTATIN [Concomitant]
     Route: 048
     Dates: start: 20061020
  6. FOSAMAX [Concomitant]
     Indication: OSTEOPOROSIS
     Route: 048
     Dates: start: 20061020
  7. CALTRATE                           /00108001/ [Concomitant]
     Indication: OSTEOPOROSIS
     Route: 048
     Dates: start: 20061020
  8. AVAPRO HCT [Concomitant]
     Indication: HYPERTENSION
     Route: 048
     Dates: start: 20061020
  9. PARIET [Concomitant]
     Route: 048
     Dates: start: 20061020
  10. CEPHALEXIN [Concomitant]
     Indication: ANTIBIOTIC PROPHYLAXIS
     Route: 048
     Dates: start: 20061023
  11. ONDANSETRON [Concomitant]
     Route: 042
     Dates: start: 20061022, end: 20061022
  12. KEFZOL [Concomitant]
     Indication: ANTIBIOTIC PROPHYLAXIS
     Route: 042
     Dates: start: 20061020, end: 20061021
  13. COLOXYL WITH SENNA [Concomitant]
     Indication: CONSTIPATION
     Route: 048
     Dates: start: 20061024, end: 20061024
  14. SORBILAX [Concomitant]
     Indication: CONSTIPATION
     Route: 048
     Dates: start: 20061024, end: 20061024
  15. ENDONE [Concomitant]
     Indication: PAIN
     Route: 048
     Dates: start: 20061027, end: 20061027
  16. ACETAMINOPHEN [Concomitant]
     Indication: PAIN
     Route: 048
     Dates: start: 20061027, end: 20061030
  17. OXYCODONE HCL [Concomitant]
     Indication: PAIN
     Route: 048
     Dates: start: 20061027, end: 20061030
  18. FENTANYL [Concomitant]
     Route: 042
     Dates: start: 20061020, end: 20061021
  19. NAROPIN [Concomitant]
     Indication: PAIN
     Dates: start: 20061020, end: 20061021
  20. MIDAZOLAM HCL [Concomitant]
     Route: 042
     Dates: start: 20061020, end: 20061020
  21. PROPOFOL [Concomitant]
     Route: 042
     Dates: start: 20061020, end: 20061020
  22. ROCURONIUM BROMIDE [Concomitant]
     Route: 042
     Dates: start: 20061020, end: 20061020
  23. GENTAMICIN [Concomitant]
     Indication: ANTIBIOTIC PROPHYLAXIS
     Route: 042
     Dates: start: 20061020, end: 20061020
  24. METARAMINOL [Concomitant]
     Indication: HYPOTENSION
     Route: 042
     Dates: start: 20061020, end: 20061020

REACTIONS (1)
  - WOUND SECRETION [None]
